FAERS Safety Report 8482147-6 (Version None)
Quarter: 2012Q3

REPORT INFORMATION
  Report Type: 
  Country: None (occurrence: None)
  Receive Date: 20120702
  Receipt Date: 20120622
  Transmission Date: 20120928
  Serious: Yes (Other)
  Sender: FDA-Public Use
  Company Number: CH-NAPPMUNDI-DEU-2012-0009066

PATIENT
  Age: 79 Year
  Sex: Male
  Weight: 67 kg

DRUGS (10)
  1. GLUCOPHAGE [Interacting]
     Indication: PRODUCT USED FOR UNKNOWN INDICATION
     Dosage: 850 MG, BID
  2. OXYCODONE HCL [Suspect]
     Dosage: 24 MG, DAILY
     Route: 048
     Dates: start: 20120221, end: 20120222
  3. ENOXAPARIN SODIUM [Concomitant]
     Indication: PRODUCT USED FOR UNKNOWN INDICATION
     Dosage: 40 MG, DAILY
     Route: 058
     Dates: start: 20120215
  4. ASPIRIN [Concomitant]
     Indication: PRODUCT USED FOR UNKNOWN INDICATION
     Dosage: 100 MG, DAILY
     Route: 048
  5. OXYCODONE HCL [Suspect]
     Indication: PRODUCT USED FOR UNKNOWN INDICATION
     Dosage: 16 MG, DAILY
     Route: 048
     Dates: start: 20120222, end: 20120223
  6. ACCUPAQUE [Interacting]
     Indication: PRODUCT USED FOR UNKNOWN INDICATION
     Dosage: 70 ML, DAILY
     Route: 042
     Dates: start: 20120222, end: 20120222
  7. OXYCODONE HCL [Suspect]
     Dosage: 20 MG, DAILY
     Route: 048
     Dates: start: 20120215, end: 20120221
  8. IMIPENEM/CILASTATIN [Suspect]
     Indication: PRODUCT USED FOR UNKNOWN INDICATION
     Dosage: 500 MG, TID
     Route: 042
     Dates: start: 20120223, end: 20120225
  9. LYRICA [Concomitant]
     Indication: PRODUCT USED FOR UNKNOWN INDICATION
     Dosage: 100 MG, TID
     Route: 048
  10. CLONAZEPAM [Concomitant]
     Indication: PRODUCT USED FOR UNKNOWN INDICATION
     Dosage: 0.5 MG, PM
     Route: 048
     Dates: end: 20120222

REACTIONS (4)
  - DERMATITIS EXFOLIATIVE [None]
  - RENAL FAILURE [None]
  - METABOLIC ACIDOSIS [None]
  - SOMNOLENCE [None]
